FAERS Safety Report 6431318-9 (Version None)
Quarter: 2009Q4

REPORT INFORMATION
  Report Type: 
  Country: None (occurrence: None)
  Receive Date: 20091106
  Receipt Date: 20091030
  Transmission Date: 20100525
  Serious: Yes (Death)
  Sender: FDA-Public Use
  Company Number: CA-PFIZER INC-2009291663

PATIENT
  Sex: Female

DRUGS (1)
  1. CELEBREX [Suspect]
     Route: 048

REACTIONS (1)
  - DEATH [None]
